FAERS Safety Report 5600910-3 (Version None)
Quarter: 2007Q4

REPORT INFORMATION
  Report Type: 
  Country: None (occurrence: None)
  Receive Date: 20071226
  Receipt Date: 20070824
  Transmission Date: 20080405
  Serious: Yes (Other)
  Sender: FDA-Public Use
  Company Number: 246056

PATIENT
  Age: 40 Year
  Sex: Female

DRUGS (4)
  1. RAPTIVA [Suspect]
     Indication: PSORIASIS
     Dates: start: 20050101, end: 20070801
  2. TOPICAL OINTMENT (INGREDIENTS) (DERMATOLOGIC AGENT NOS) [Concomitant]
  3. BIRTH CONTROL PILLS (UNK INGREDIENTS) (ORAL CONTRACEPTIVES NOS) [Concomitant]
  4. MULTI-VITAMINS [Concomitant]

REACTIONS (1)
  - ANAEMIA HAEMOLYTIC AUTOIMMUNE [None]
